FAERS Safety Report 21441599 (Version 1)
Quarter: 2022Q4

REPORT INFORMATION
  Report Type: Report from Study
  Country: US (occurrence: US)
  Receive Date: 20221011
  Receipt Date: 20221011
  Transmission Date: 20230113
  Serious: Yes (Other)
  Sender: FDA-Public Use
  Company Number: US-BRISTOL-MYERS SQUIBB COMPANY-2022-083903

PATIENT
  Age: 81 Year
  Sex: Male

DRUGS (3)
  1. REVLIMID [Suspect]
     Active Substance: LENALIDOMIDE
     Indication: Plasma cell myeloma
     Dosage: 2.5MG/1 CAP DAILY
     Route: 048
  2. DEXAMETHASONE [Concomitant]
     Active Substance: DEXAMETHASONE
  3. XARELTO [Concomitant]
     Active Substance: RIVAROXABAN

REACTIONS (5)
  - Drug ineffective [Unknown]
  - Diabetes mellitus [Unknown]
  - Contusion [Unknown]
  - Dyspnoea [Unknown]
  - Sleep disorder [Unknown]
